FAERS Safety Report 20173066 (Version 1)
Quarter: 2021Q4

REPORT INFORMATION
  Report Type: Report from Study
  Country: CO (occurrence: CO)
  Receive Date: 20211211
  Receipt Date: 20211211
  Transmission Date: 20220303
  Serious: Yes (Other)
  Sender: FDA-Public Use
  Company Number: CO-NOVARTISPH-NVSC2020CO268982

PATIENT
  Age: 50 Year
  Sex: Female
  Weight: 44 kg

DRUGS (8)
  1. KISQALI [Suspect]
     Active Substance: RIBOCICLIB
     Indication: Breast cancer metastatic
     Dosage: 600 MG, QD
     Route: 048
  2. KISQALI [Suspect]
     Active Substance: RIBOCICLIB
     Dosage: 400 MG (TABLET OF 200 MG)
     Route: 048
     Dates: start: 20201016, end: 202110
  3. FEMARA [Suspect]
     Active Substance: LETROZOLE
     Indication: Breast cancer
     Dosage: 2 MG
     Route: 048
  4. FEMARA [Suspect]
     Active Substance: LETROZOLE
     Dosage: 2.5 MG, QD
     Route: 048
     Dates: start: 20201016, end: 202110
  5. ONDANSETRON [Suspect]
     Active Substance: ONDANSETRON
     Indication: Nausea
     Dosage: UNK UNK, QD
     Route: 048
     Dates: start: 202008
  6. OXYCODONE [Concomitant]
     Active Substance: OXYCODONE
     Indication: Pain
     Dosage: UNK, QD
     Route: 048
     Dates: start: 202009
  7. CAPECITABINE [Concomitant]
     Active Substance: CAPECITABINE
     Indication: Product used for unknown indication
     Dosage: UNK UNK, QID (TABLETS IN THE MORNING AND 2 IN THE AFTERNOON, FOR 14 DAYS)
     Route: 065
  8. CAPECITABINE [Concomitant]
     Active Substance: CAPECITABINE
     Dosage: UNK (AGAIN FOR 14 DAYS)
     Route: 065

REACTIONS (10)
  - Breast cancer [Unknown]
  - Malignant neoplasm progression [Unknown]
  - Decreased immune responsiveness [Recovered/Resolved]
  - Discouragement [Recovering/Resolving]
  - Somnolence [Recovering/Resolving]
  - Alopecia [Recovering/Resolving]
  - Decreased appetite [Recovering/Resolving]
  - Blood creatinine increased [Unknown]
  - Platelet count decreased [Unknown]
  - Vomiting [Unknown]

NARRATIVE: CASE EVENT DATE: 20210701
